FAERS Safety Report 4642301-8 (Version None)
Quarter: 2005Q2

REPORT INFORMATION
  Report Type: 
  Country: None (occurrence: None)
  Receive Date: 20050420
  Receipt Date: 20050407
  Transmission Date: 20051028
  Serious: Yes (Other)
  Sender: FDA-Public Use
  Company Number: 2005058588

PATIENT
  Age: 38 Year
  Sex: Female

DRUGS (4)
  1. GENOTONORM (SOMATROPIN) [Suspect]
     Indication: HYPOPITUITARISM
     Dosage: 0.8  MG (  , DAILY),
     Dates: start: 19941012
  2. PROPRANOLOL [Concomitant]
  3. HYDROCORTISONE ACETATE (HYDR0CORTISONE ACETATE) [Concomitant]
  4. DOMPERIDONE (DOMPERIDONE) [Concomitant]

REACTIONS (3)
  - ABORTION SPONTANEOUS [None]
  - DRUG EXPOSURE DURING PREGNANCY [None]
  - PREGNANCY [None]
